FAERS Safety Report 23841421 (Version 1)
Quarter: 2024Q2

REPORT INFORMATION
  Report Type: Spontaneous
  Country: GB (occurrence: None)
  Receive Date: 20240510
  Receipt Date: 20240510
  Transmission Date: 20240716
  Serious: Yes (Hospitalization, Other)
  Sender: FDA-Public Use
  Company Number: GB-SANDOZ-SDZ2024GB044905

PATIENT
  Sex: Female

DRUGS (2)
  1. METHOTREXATE [Suspect]
     Active Substance: METHOTREXATE
     Indication: Psoriatic arthropathy
     Dosage: STRENGTH: 2.5 MILLIGRAM
  2. METHOTREXATE [Suspect]
     Active Substance: METHOTREXATE
     Dosage: STRENGTH: 2.5 MILLIGRAM, (6 TABLETS A WEEK)

REACTIONS (4)
  - Sepsis [Unknown]
  - Drug ineffective [Unknown]
  - Liver disorder [Unknown]
  - Paranoia [Unknown]
